FAERS Safety Report 24620120 (Version 2)
Quarter: 2024Q4

REPORT INFORMATION
  Report Type: Spontaneous
  Country: HR (occurrence: HR)
  Receive Date: 20241114
  Receipt Date: 20241122
  Transmission Date: 20250115
  Serious: No
  Sender: GILEAD
  Company Number: HR-GILEAD-2024-0693890

PATIENT
  Age: 85 Year
  Sex: Male

DRUGS (1)
  1. VEKLURY [Suspect]
     Active Substance: REMDESIVIR
     Indication: COVID-19
     Dosage: UNK (FOR 5 DAYS)
     Route: 065

REACTIONS (3)
  - Lymphocyte count decreased [Unknown]
  - Blood creatinine increased [Unknown]
  - C-reactive protein increased [Unknown]
